FAERS Safety Report 12340456 (Version 1)
Quarter: 2016Q2

REPORT INFORMATION
  Report Type: Spontaneous
  Country: US (occurrence: None)
  Receive Date: 20160505
  Receipt Date: 20160505
  Transmission Date: 20160815
  Serious: No
  Sender: FDA-Public Use
  Company Number: None

PATIENT
  Age: 65 Year
  Sex: Female
  Weight: 65.77 kg

DRUGS (2)
  1. IPRATROPIUM BROMIDE NASAL SPRAY, 42 MCG [Suspect]
     Active Substance: IPRATROPIUM BROMIDE
     Indication: RHINITIS
     Dosage: 2 SPRAY(S) IN THE MORNING INHALATION
     Route: 055
     Dates: start: 20140228, end: 20160430
  2. SUPPLEMENTS [Concomitant]
     Active Substance: UNSPECIFIED INGREDIENT

REACTIONS (3)
  - Headache [None]
  - Visual acuity reduced [None]
  - Halo vision [None]

NARRATIVE: CASE EVENT DATE: 20160410
